FAERS Safety Report 9079594 (Version 1)
Quarter: 2013Q1

REPORT INFORMATION
  Report Type: Spontaneous
  Country: IT (occurrence: IT)
  Receive Date: 20130130
  Receipt Date: 20130130
  Transmission Date: 20140127
  Serious: Yes (Other)
  Sender: FDA-Public Use
  Company Number: IT-SANOFI-AVENTIS-2013SA005926

PATIENT
  Age: 49 Year
  Sex: Male
  Weight: 110 kg

DRUGS (5)
  1. OXALIPLATIN [Suspect]
     Indication: ADENOCARCINOMA OF COLON
     Route: 041
     Dates: start: 20120905
  2. OXALIPLATIN [Suspect]
     Indication: ADENOCARCINOMA OF COLON
     Route: 041
     Dates: start: 20120921
  3. FLUOROURACIL [Suspect]
     Indication: ADENOCARCINOMA OF COLON
     Route: 042
     Dates: start: 20120905
  4. FLUOROURACIL [Suspect]
     Indication: ADENOCARCINOMA OF COLON
     Route: 042
     Dates: start: 20120921
  5. FOLINIC ACID [Concomitant]
     Dates: start: 20120905, end: 20120921

REACTIONS (3)
  - Cholestasis [Recovering/Resolving]
  - Gamma-glutamyltransferase increased [Recovering/Resolving]
  - Transaminases increased [Recovering/Resolving]
